APPROVED DRUG PRODUCT: GADOBUTROL
Active Ingredient: GADOBUTROL
Strength: 9.0708GM/15ML (604.72MG/ML)
Dosage Form/Route: SOLUTION;INTRAVENOUS
Application: A216081 | Product #006 | TE Code: AP
Applicant: JIANGSU HENGRUI PHARMACEUTICALS CO LTD
Approved: Nov 17, 2022 | RLD: No | RS: No | Type: RX